FAERS Safety Report 8237319-2 (Version None)
Quarter: 2012Q1

REPORT INFORMATION
  Report Type: 
  Country: None (occurrence: None)
  Receive Date: 20120327
  Receipt Date: 20120319
  Transmission Date: 20120608
  Serious: Yes (Hospitalization)
  Sender: FDA-Public Use
  Company Number: US-BAYER-2011-037860

PATIENT
  Age: 39 Year
  Sex: Female
  Weight: 74 kg

DRUGS (7)
  1. YAZ [Suspect]
     Indication: ORAL CONTRACEPTION
     Dosage: UNK
     Dates: start: 20080101, end: 20090101
  2. PRILOSEC [Concomitant]
     Dosage: 20 MG, QD
     Route: 048
     Dates: start: 20090626
  3. YASMIN [Suspect]
     Indication: ORAL CONTRACEPTION
     Dosage: UNK
     Dates: start: 20080101, end: 20090101
  4. YAZ [Suspect]
     Dosage: UNK
     Dates: start: 20080101, end: 20090101
  5. RANITIDINE HCL [Concomitant]
     Dosage: 150 MG, QD
     Route: 048
     Dates: start: 20090626
  6. MIGRAINE MEDICINE [Concomitant]
     Indication: MIGRAINE
  7. NEXIUM [Concomitant]
     Dosage: 40 MG, QD
     Dates: start: 20090819

REACTIONS (9)
  - ANHEDONIA [None]
  - EMOTIONAL DISTRESS [None]
  - CHOLECYSTITIS CHRONIC [None]
  - INJURY [None]
  - GENERAL PHYSICAL HEALTH DETERIORATION [None]
  - PAIN [None]
  - ORGAN FAILURE [None]
  - ANXIETY [None]
  - CHOLECYSTECTOMY [None]
